FAERS Safety Report 12926252 (Version 3)
Quarter: 2017Q1

REPORT INFORMATION
  Report Type: Spontaneous
  Country: JP (occurrence: JP)
  Receive Date: 20161109
  Receipt Date: 20170328
  Transmission Date: 20170428
  Serious: Yes (Hospitalization, Other)
  Sender: FDA-Public Use
  Company Number: JP-TAKEDA-2016MPI009599

PATIENT
  Age: 65 Year
  Sex: Female
  Weight: 51 kg

DRUGS (7)
  1. VELCADE [Suspect]
     Active Substance: BORTEZOMIB
     Dosage: 1.4 MG, UNK
     Route: 042
     Dates: start: 20120727, end: 20120727
  2. ALKERAN [Suspect]
     Active Substance: MELPHALAN
     Indication: PLASMA CELL MYELOMA
     Dosage: 290 MG, QD
     Route: 065
     Dates: start: 20120728, end: 20120728
  3. ALOXI [Concomitant]
     Active Substance: PALONOSETRON HYDROCHLORIDE
     Indication: VOMITING
     Dosage: 0.75 MG, QD
     Route: 042
     Dates: start: 20120728, end: 20120728
  4. VELCADE [Suspect]
     Active Substance: BORTEZOMIB
     Dosage: 1.4 MG, UNK
     Route: 042
     Dates: start: 20120803, end: 20120803
  5. VELCADE [Suspect]
     Active Substance: BORTEZOMIB
     Indication: PLASMA CELL MYELOMA
     Dosage: 1.4 MG, UNK
     Route: 042
     Dates: start: 20120724, end: 20120724
  6. VELCADE [Suspect]
     Active Substance: BORTEZOMIB
     Dosage: 1.4 MG, UNK
     Route: 042
     Dates: start: 20120731, end: 20120731
  7. DECADRON [Concomitant]
     Active Substance: DEXAMETHASONE
     Indication: PLASMA CELL MYELOMA
     Dosage: 8 MG, UNK
     Route: 042
     Dates: start: 20120724, end: 20120803

REACTIONS (2)
  - Diarrhoea [Recovered/Resolved]
  - Graft versus host disease [Recovered/Resolved]

NARRATIVE: CASE EVENT DATE: 20120804
